FAERS Safety Report 9439335 (Version 3)
Quarter: 2013Q4

REPORT INFORMATION
  Report Type: Report from Study
  Country: CA (occurrence: CA)
  Receive Date: 20130805
  Receipt Date: 20131004
  Transmission Date: 20140711
  Serious: Yes (Other)
  Sender: FDA-Public Use
  Company Number: CA-ROCHE-1235082

PATIENT
  Age: 54 Year
  Sex: Female
  Weight: 115 kg

DRUGS (9)
  1. ACTEMRA [Suspect]
     Indication: RHEUMATOID ARTHRITIS
     Route: 042
     Dates: start: 20130510, end: 20130819
  2. RITUXAN [Suspect]
     Indication: RHEUMATOID ARTHRITIS
     Dosage: DAY 1, 15
     Route: 042
     Dates: start: 20101026, end: 20130529
  3. SYNTHROID [Concomitant]
  4. PREDNISONE [Concomitant]
  5. ZOPICLONE [Concomitant]
  6. LASIX [Concomitant]
     Route: 065
  7. LORAZEPAM [Concomitant]
  8. NABUMETONE [Concomitant]
  9. FISH OIL [Concomitant]

REACTIONS (2)
  - Drug ineffective [Unknown]
  - Malaise [Not Recovered/Not Resolved]
